FAERS Safety Report 7348248-0 (Version None)
Quarter: 2011Q1

REPORT INFORMATION
  Report Type: 
  Country: None (occurrence: None)
  Receive Date: 20110311
  Receipt Date: 20110302
  Transmission Date: 20110831
  Serious: Yes (Hospitalization)
  Sender: FDA-Public Use
  Company Number: JP-NOVOPROD-322867

PATIENT
  Age: 67 Year
  Sex: Female
  Weight: 69.5 kg

DRUGS (4)
  1. GLIMEPIRIDE [Concomitant]
     Dosage: 6 MG, QD
  2. NOVORAPID CHU [Suspect]
     Indication: TYPE 2 DIABETES MELLITUS
     Dosage: 7 U, QD
     Route: 058
  3. LEVEMIR [Suspect]
     Indication: TYPE 2 DIABETES MELLITUS
     Dosage: 22 IU IN THE EVENING
     Route: 058
  4. METFORMIN HYDROCHLORIDE [Concomitant]
     Dosage: 750 MG, QD

REACTIONS (2)
  - DIABETES MELLITUS INADEQUATE CONTROL [None]
  - WEIGHT INCREASED [None]
